FAERS Safety Report 23064554 (Version 1)
Quarter: 2023Q4

REPORT INFORMATION
  Report Type: Report from Study
  Country: CN (occurrence: CN)
  Receive Date: 20231013
  Receipt Date: 20231013
  Transmission Date: 20240109
  Serious: Yes (Other)
  Sender: FDA-Public Use
  Company Number: CN-TAKEDA-2023TUS056576

PATIENT
  Age: 69 Year
  Sex: Female
  Weight: 40 kg

DRUGS (17)
  1. IXAZOMIB [Suspect]
     Active Substance: IXAZOMIB
     Indication: Plasma cell myeloma
     Dosage: 3 MILLIGRAM, 1/WEEK
     Route: 048
     Dates: start: 20211015
  2. ESOMEPRAZOLE [Concomitant]
     Active Substance: ESOMEPRAZOLE
     Indication: Gastric ulcer
     Dosage: 20 MILLIGRAM, QD
     Route: 048
     Dates: start: 20211231, end: 2022
  3. OMEPRAZOLE [Concomitant]
     Active Substance: OMEPRAZOLE
     Indication: Gastric ulcer
     Dosage: 20 MILLIGRAM, QD
     Route: 048
     Dates: start: 20211231, end: 2022
  4. FAMOTIDINE [Concomitant]
     Active Substance: FAMOTIDINE
     Indication: Prophylaxis
     Dosage: 20 MILLIGRAM, BID
     Route: 048
     Dates: start: 20220101
  5. ACYCLOVIR [Concomitant]
     Active Substance: ACYCLOVIR
     Indication: Herpes zoster
     Dosage: 0.2 GRAM, TID
     Route: 048
     Dates: start: 20220101
  6. FLUCONAZOLE [Concomitant]
     Active Substance: FLUCONAZOLE
     Indication: Infection
     Dosage: 50 MILLIGRAM, QD
     Route: 048
     Dates: start: 20220101
  7. METHYLCOBALAMIN [Concomitant]
     Active Substance: METHYLCOBALAMIN
     Indication: Anaemia
     Dosage: 0.5 MILLIGRAM, TID
     Route: 048
     Dates: start: 20211021
  8. GABAPENTIN [Concomitant]
     Active Substance: GABAPENTIN
     Indication: Neuropathy peripheral
     Dosage: 0.1 GRAM, TID
     Route: 048
     Dates: start: 20220101
  9. HERBALS\DIAMMONIUM GLYCYRRHIZINATE [Concomitant]
     Active Substance: HERBALS\DIAMMONIUM GLYCYRRHIZINATE
     Indication: Prophylaxis
     Dosage: 50 MILLIGRAM, TID
     Route: 048
     Dates: start: 20220101
  10. ASPIRIN [Concomitant]
     Active Substance: ASPIRIN
     Indication: Thrombosis
     Dosage: 100 NANOGRAM, QD
     Route: 048
     Dates: start: 20211230
  11. CALCITRIOL AN [Concomitant]
     Indication: Osteoporosis
     Dosage: 0.25 MICROGRAM, BID
     Route: 048
     Dates: start: 20220331
  12. CYCLOPHOSPHAMIDE [Concomitant]
     Active Substance: CYCLOPHOSPHAMIDE
     Indication: Plasma cell myeloma
     Dosage: 0.3 GRAM, QD
     Route: 048
     Dates: start: 20211231, end: 20211231
  13. DEXAMETHASONE [Concomitant]
     Active Substance: DEXAMETHASONE
     Indication: Plasma cell myeloma
     Dosage: 20 MILLIGRAM, QD
     Route: 048
     Dates: start: 20211231, end: 20211231
  14. BERBERINE [Concomitant]
     Active Substance: BERBERINE
     Indication: Prophylaxis
     Dosage: 0.1 GRAM, TID
     Route: 048
     Dates: start: 20211025, end: 20220201
  15. CHLORHEXIDINE ACETATE [Concomitant]
     Active Substance: CHLORHEXIDINE ACETATE
     Indication: Prophylaxis
     Dosage: 10 MILLILITER, TID
     Route: 065
     Dates: start: 20211024, end: 20220115
  16. ERYTHROMYCIN [Concomitant]
     Active Substance: ERYTHROMYCIN
     Indication: Prophylaxis
     Dosage: 5 MILLIGRAM
     Route: 065
     Dates: start: 20211230, end: 20220110
  17. POTASSIUM CHLORIDE [Concomitant]
     Active Substance: POTASSIUM CHLORIDE
     Indication: Prophylaxis
     Dosage: 0.5 GRAM, BID
     Route: 048
     Dates: start: 20211229, end: 20220222

REACTIONS (5)
  - Hypokalaemia [Recovering/Resolving]
  - Neuropathy peripheral [Recovering/Resolving]
  - Urinary tract infection [Recovering/Resolving]
  - Constipation [Recovering/Resolving]
  - Off label use [Recovered/Resolved]

NARRATIVE: CASE EVENT DATE: 20211230
